FAERS Safety Report 10475380 (Version 1)
Quarter: 2014Q3

REPORT INFORMATION
  Report Type: Spontaneous
  Country: US (occurrence: None)
  Receive Date: 20140924
  Receipt Date: 20140924
  Transmission Date: 20150326
  Serious: Yes (Hospitalization)
  Sender: FDA-Public Use
  Company Number: None

PATIENT
  Age: 83 Year
  Sex: Male
  Weight: 78.4 kg

DRUGS (8)
  1. LECITHIN [Concomitant]
     Active Substance: LECITHIN
  2. ATIVAN [Concomitant]
     Active Substance: LORAZEPAM
  3. LEXAPRO [Concomitant]
     Active Substance: ESCITALOPRAM OXALATE
  4. SYNTHROID [Concomitant]
     Active Substance: LEVOTHYROXINE SODIUM
  5. BACTRIM [Suspect]
     Active Substance: SULFAMETHOXAZOLE\TRIMETHOPRIM
     Indication: URINARY TRACT INFECTION
     Route: 048
  6. LASIX [Suspect]
     Active Substance: FUROSEMIDE
     Indication: POLYURIA
     Route: 048
  7. VITAMIN B12 [Concomitant]
     Active Substance: CYANOCOBALAMIN
  8. ASA [Concomitant]
     Active Substance: ASPIRIN

REACTIONS (3)
  - Polyuria [None]
  - Renal failure acute [None]
  - Hypotension [None]

NARRATIVE: CASE EVENT DATE: 20140327
